FAERS Safety Report 4999624-2 (Version None)
Quarter: 2006Q2

REPORT INFORMATION
  Report Type: 
  Country: None (occurrence: None)
  Receive Date: 20060509
  Receipt Date: 20060509
  Transmission Date: 20061013
  Serious: Yes (Hospitalization, Other)
  Sender: FDA-Public Use
  Company Number: None

PATIENT
  Sex: Male

DRUGS (2)
  1. FLUDARABINE [Suspect]
     Indication: B PRECURSOR TYPE ACUTE LEUKAEMIA
     Dosage: 56 MG (25 MG/M2) DAILY X 5 DAYS IV
     Route: 042
     Dates: start: 20050711, end: 20050715
  2. RITUXAN [Suspect]
     Dosage: 800 MG ONCE
     Dates: start: 20050711

REACTIONS (5)
  - BODY TEMPERATURE INCREASED [None]
  - CHILLS [None]
  - DYSPNOEA [None]
  - HEADACHE [None]
  - INFECTION [None]
